FAERS Safety Report 4681419-0 (Version None)
Quarter: 2005Q2

REPORT INFORMATION
  Report Type: 
  Country: None (occurrence: None)
  Receive Date: 20050603
  Receipt Date: 20050519
  Transmission Date: 20051028
  Serious: Yes (Other)
  Sender: FDA-Public Use
  Company Number: 2005UW08073

PATIENT
  Age: 63 Year
  Sex: Female

DRUGS (3)
  1. ARIMIDEX [Suspect]
     Indication: BREAST CANCER
     Route: 048
     Dates: start: 20050510, end: 20050519
  2. PERCOCET [Concomitant]
     Indication: PAIN
  3. BROMAZEPAM [Concomitant]
     Indication: INSOMNIA

REACTIONS (4)
  - BURNING SENSATION [None]
  - EMOTIONAL DISTRESS [None]
  - FEELING HOT [None]
  - HERPES SIMPLEX [None]
